FAERS Safety Report 8207283-0 (Version None)
Quarter: 2012Q1

REPORT INFORMATION
  Report Type: 
  Country: None (occurrence: None)
  Receive Date: 20120314
  Receipt Date: 20120302
  Transmission Date: 20120608
  Serious: Yes (Other)
  Sender: FDA-Public Use
  Company Number: JP-UCBSA-052614

PATIENT
  Age: 90 Year
  Sex: Male

DRUGS (1)
  1. XYZAL [Suspect]
     Indication: ECZEMA ASTEATOTIC
     Route: 048
     Dates: start: 20111217

REACTIONS (2)
  - HEPATIC FUNCTION ABNORMAL [None]
  - GAMMA-GLUTAMYLTRANSFERASE INCREASED [None]
